FAERS Safety Report 14437047 (Version 1)
Quarter: 2018Q1

REPORT INFORMATION
  Report Type: Spontaneous
  Country: US (occurrence: US)
  Receive Date: 20180125
  Receipt Date: 20180125
  Transmission Date: 20180509
  Serious: Yes (Other)
  Sender: FDA-Public Use
  Company Number: None

PATIENT
  Age: 72 Year
  Sex: Male
  Weight: 85.5 kg

DRUGS (11)
  1. NORTRIPTYLINE [Concomitant]
     Active Substance: NORTRIPTYLINE
  2. NAPROXEN SODIUM. [Concomitant]
     Active Substance: NAPROXEN SODIUM
  3. P-COL-RITE [Concomitant]
  4. COQ10 [Concomitant]
     Active Substance: UBIDECARENONE
  5. MENS DAILY VITAMIN W/D-3 (IRON FREE) [Concomitant]
  6. ATORVASTATIN 40MG [Suspect]
     Active Substance: ATORVASTATIN
     Indication: BLOOD CHOLESTEROL INCREASED
     Dosage: ?          QUANTITY:90 TABLET(S);?
     Route: 048
     Dates: start: 20170215, end: 20170303
  7. MAGNESIUM [Concomitant]
     Active Substance: MAGNESIUM
  8. ATORVASTATIN 40MG [Suspect]
     Active Substance: ATORVASTATIN
     Indication: PROPHYLAXIS
     Dosage: ?          QUANTITY:90 TABLET(S);?
     Route: 048
     Dates: start: 20170215, end: 20170303
  9. TURMERIC CURCUMIN [Concomitant]
     Active Substance: HERBALS\TURMERIC
  10. FAMOTIDINE. [Concomitant]
     Active Substance: FAMOTIDINE
  11. FISH OIL [Concomitant]
     Active Substance: FISH OIL

REACTIONS (8)
  - Drug ineffective [None]
  - Cough [None]
  - Walking aid user [None]
  - Pain in extremity [None]
  - Therapy cessation [None]
  - Pain [None]
  - Arthralgia [None]
  - Muscular weakness [None]

NARRATIVE: CASE EVENT DATE: 20170215
